FAERS Safety Report 4963473-1 (Version None)
Quarter: 2006Q1

REPORT INFORMATION
  Report Type: 
  Country: None (occurrence: None)
  Receive Date: 20060329
  Receipt Date: 20060112
  Transmission Date: 20060701
  Serious: Yes (Hospitalization)
  Sender: FDA-Public Use
  Company Number: 2005BH000070

PATIENT
  Age: 60 Year
  Sex: Female

DRUGS (1)
  1. IMMUNE GLOBULIN INTRAVENOUS (HUMAN) [Suspect]
     Indication: MILLER FISHER SYNDROME
     Dosage: 400 MG/KG; EVERY DAY; IV
     Route: 042

REACTIONS (10)
  - BLINDNESS [None]
  - CEREBRAL INFARCTION [None]
  - CEREBROVASCULAR ACCIDENT [None]
  - CONFUSIONAL STATE [None]
  - DIARRHOEA [None]
  - DIPLOPIA [None]
  - INAPPROPRIATE ANTIDIURETIC HORMONE SECRETION [None]
  - LOSS OF PROPRIOCEPTION [None]
  - OPHTHALMOPLEGIA [None]
  - TACHYCARDIA [None]
